FAERS Safety Report 4950701-1 (Version None)
Quarter: 2006Q1

REPORT INFORMATION
  Report Type: 
  Country: None (occurrence: None)
  Receive Date: 20060321
  Receipt Date: 20060321
  Transmission Date: 20060701
  Serious: Yes (Other)
  Sender: FDA-Public Use
  Company Number: None

PATIENT
  Age: 68 Year
  Sex: Male
  Weight: 106.1 kg

DRUGS (10)
  1. FORADIL [Suspect]
  2. SIMVASTATIN [Concomitant]
  3. LISINOPRIL [Concomitant]
  4. FLUNISOLIDE [Concomitant]
  5. FUROSEMIDE [Concomitant]
  6. ASPIRIN [Concomitant]
  7. FORMOTEROL FUMARATE [Concomitant]
  8. HYDROXYZINE PAMOATE [Concomitant]
  9. MELOXICAM [Concomitant]
  10. ALBUTEROL / IPRATROP [Concomitant]

REACTIONS (1)
  - MYALGIA [None]
